FAERS Safety Report 17075799 (Version 10)
Quarter: 2021Q4

REPORT INFORMATION
  Report Type: Spontaneous
  Country: US (occurrence: US)
  Receive Date: 20191126
  Receipt Date: 20211011
  Transmission Date: 20220304
  Serious: Yes (Other)
  Sender: FDA-Public Use
  Company Number: US-PFIZER INC-2019510220

PATIENT
  Age: 66 Year
  Sex: Female

DRUGS (6)
  1. SKELAXIN [Suspect]
     Active Substance: METAXALONE
     Indication: Back pain
     Dosage: 800 MG, 3X/DAY (AS NEEDED)
     Route: 048
  2. SKELAXIN [Suspect]
     Active Substance: METAXALONE
     Indication: Muscle spasms
     Dosage: 800 MG, 3X/DAY (AS NEEDED)
     Route: 048
     Dates: start: 20200928
  3. SKELAXIN [Suspect]
     Active Substance: METAXALONE
     Indication: Fibromyalgia
  4. SKELAXIN [Suspect]
     Active Substance: METAXALONE
     Indication: Pain
  5. LEVOTHYROXINE [Concomitant]
     Active Substance: LEVOTHYROXINE
     Indication: Neuropathy peripheral
     Dosage: 75 UG, 1X/DAY
     Route: 048
  6. DICLOFENAC EPOLAMINE [Concomitant]
     Active Substance: DICLOFENAC EPOLAMINE
     Dosage: 1 PATCH (180 MG) ON FOR 12 TO 16 HOURS OFF FOR 8 TO 12 HOURS AS NEEDED
     Route: 062

REACTIONS (4)
  - Colitis ulcerative [Unknown]
  - Asthma [Unknown]
  - Lung disorder [Unknown]
  - Product dispensing error [Unknown]
